FAERS Safety Report 21407352 (Version 2)
Quarter: 2022Q4

REPORT INFORMATION
  Report Type: Spontaneous
  Country: CA (occurrence: CA)
  Receive Date: 20221004
  Receipt Date: 20221006
  Transmission Date: 20230112
  Serious: Yes (Other)
  Sender: FDA-Public Use
  Company Number: CA-PFIZER INC-202201183184

PATIENT
  Age: 2 Day
  Sex: Male
  Weight: 3.3 kg

DRUGS (5)
  1. VANCOMYCIN HYDROCHLORIDE [Suspect]
     Active Substance: VANCOMYCIN HYDROCHLORIDE
     Indication: Endocarditis enterococcal
     Dosage: 10 MG, 1X/DAY BY INTRAVENTRICULAR ROUTE THROUGH THE EXTERNAL VENTRICULAR DRAIN
  2. VANCOMYCIN HYDROCHLORIDE [Suspect]
     Active Substance: VANCOMYCIN HYDROCHLORIDE
     Indication: Congenital hydrocephalus
     Dosage: 5 MG, 1X/DAY; BY INTRAVENTRICULAR ROUTE THROUGH THE EXTERNAL VENTRICULAR DRAIN
  3. VANCOMYCIN HYDROCHLORIDE [Suspect]
     Active Substance: VANCOMYCIN HYDROCHLORIDE
     Dosage: 18 MG/KG, 2X/DAY
     Route: 042
  4. CEFTAZIDIME [Suspect]
     Active Substance: CEFTAZIDIME
     Indication: Congenital hydrocephalus
     Dosage: 50 MG/KG; 3X/DAY
     Route: 042
  5. GENTAMICIN [Suspect]
     Active Substance: GENTAMICIN
     Indication: Congenital hydrocephalus
     Dosage: 2.5 MG/KG, 2X/DAY
     Route: 042

REACTIONS (3)
  - CNS ventriculitis [Recovered/Resolved]
  - Pleocytosis [Recovered/Resolved]
  - Eosinophilia [Recovered/Resolved]
